FAERS Safety Report 8829276 (Version 2)
Quarter: 2013Q1

REPORT INFORMATION
  Report Type: Spontaneous
  Country: FR (occurrence: FR)
  Receive Date: 20121008
  Receipt Date: 20130305
  Transmission Date: 20140127
  Serious: Yes (Other)
  Sender: FDA-Public Use
  Company Number: FR-TEVA-361763ISR

PATIENT
  Sex: Female

DRUGS (1)
  1. COPAXONE [Suspect]
     Indication: MULTIPLE SCLEROSIS
     Dosage: 20 MILLIGRAM DAILY;
     Route: 058
     Dates: start: 201206

REACTIONS (5)
  - Hepatocellular injury [Recovered/Resolved]
  - Migraine [Unknown]
  - Fatigue [Unknown]
  - Amenorrhoea [Recovered/Resolved]
  - Intercostal neuralgia [Recovered/Resolved]
